FAERS Safety Report 4426448-7 (Version None)
Quarter: 2004Q3

REPORT INFORMATION
  Report Type: 
  Country: None (occurrence: None)
  Receive Date: 20040815
  Receipt Date: 20040607
  Transmission Date: 20050211
  Serious: Yes (Disabling)
  Sender: FDA-Public Use
  Company Number: US-MERCK-0406USA00641

PATIENT
  Age: 50 Year
  Sex: Female
  Weight: 80 kg

DRUGS (3)
  1. WELLBUTRIN [Concomitant]
     Route: 065
  2. ZOCOR [Suspect]
     Route: 048
     Dates: start: 20020101
  3. DESYREL [Concomitant]
     Route: 065

REACTIONS (2)
  - CONJUNCTIVITIS [None]
  - HAIR TEXTURE ABNORMAL [None]
